FAERS Safety Report 13444643 (Version 3)
Quarter: 2017Q2

REPORT INFORMATION
  Report Type: Spontaneous
  Country: US (occurrence: US)
  Receive Date: 20170414
  Receipt Date: 20170531
  Transmission Date: 20170830
  Serious: Yes (Hospitalization)
  Sender: FDA-Public Use
  Company Number: US-ACTELION-A-US2017-152544

PATIENT
  Age: 51 Year
  Sex: Female

DRUGS (12)
  1. LYRICA [Concomitant]
     Active Substance: PREGABALIN
     Dosage: 200 MG, QPM
  2. OMEPRAZOLE. [Concomitant]
     Active Substance: OMEPRAZOLE
     Dosage: 20 MG QAM AND QPM
  3. LOSARTAN. [Concomitant]
     Active Substance: LOSARTAN
     Dosage: 50 MG, BID
  4. BUMEX [Concomitant]
     Active Substance: BUMETANIDE
     Dosage: 4 MG QAM AND QPM
  5. CITALOPRAM [Concomitant]
     Active Substance: CITALOPRAM HYDROBROMIDE
     Dosage: 20 MG, QD
  6. SPIRONOLACTONE. [Concomitant]
     Active Substance: SPIRONOLACTONE
     Dosage: 25 MG, QAM
  7. LEVEMIR [Concomitant]
     Active Substance: INSULIN DETEMIR
     Dosage: 100 U, QPM
  8. POTASSIUM [Concomitant]
     Active Substance: POTASSIUM
     Dosage: 30 MEQ, BID
  9. NOVOLOG [Concomitant]
     Active Substance: INSULIN ASPART
     Dosage: 35 UNITS WITH EVERY MEAL AND SLIDING SCALE
  10. AMITRIPTYLINE [Concomitant]
     Active Substance: AMITRIPTYLINE
     Dosage: 75MG QAM AND 150MG QPM
  11. XANAX [Concomitant]
     Active Substance: ALPRAZOLAM
     Dosage: 1 MG, QPM
  12. OPSUMIT [Suspect]
     Active Substance: MACITENTAN
     Indication: PULMONARY ARTERIAL HYPERTENSION
     Dosage: UNK UNK, QD
     Route: 048
     Dates: start: 20170408

REACTIONS (5)
  - Chronic obstructive pulmonary disease [Unknown]
  - Fluid retention [Unknown]
  - Cardiac flutter [Not Recovered/Not Resolved]
  - Cardiac failure congestive [Unknown]
  - Heart rate abnormal [Not Recovered/Not Resolved]

NARRATIVE: CASE EVENT DATE: 20170409
